FAERS Safety Report 9030999 (Version 2)
Quarter: 2013Q2

REPORT INFORMATION
  Report Type: Spontaneous
  Country: US (occurrence: US)
  Receive Date: 20130123
  Receipt Date: 20130503
  Transmission Date: 20140414
  Serious: Yes (Other)
  Sender: FDA-Public Use
  Company Number: PHHY2013US005730

PATIENT
  Age: 60 Year
  Sex: Female

DRUGS (8)
  1. DICLOXACILLIN [Suspect]
     Dosage: 500 MG, Q6H
  2. WARFARIN [Interacting]
     Indication: THROMBOSIS
     Dosage: 5 MG, QD
     Route: 048
  3. WARFARIN [Interacting]
     Dosage: 10 MG, QD
     Route: 048
  4. WARFARIN [Interacting]
     Dosage: 15 MG, QD
     Route: 048
  5. WARFARIN [Interacting]
     Dosage: 7.5 MG, QD
     Route: 048
  6. WARFARIN [Interacting]
     Dosage: 5 MG, QD
     Route: 048
  7. CLINDAMYCIN [Concomitant]
  8. AMOXICILLIN CLAVULANIC ACID [Concomitant]

REACTIONS (2)
  - International normalised ratio increased [Unknown]
  - Drug interaction [Unknown]
